FAERS Safety Report 4387637-3 (Version None)
Quarter: 2004Q2

REPORT INFORMATION
  Report Type: 
  Country: None (occurrence: None)
  Receive Date: 20040630
  Receipt Date: 20040524
  Transmission Date: 20050107
  Serious: No
  Sender: FDA-Public Use
  Company Number: US-GLAXOSMITHKLINE-A0511908A

PATIENT
  Age: 34 Year
  Sex: Female

DRUGS (5)
  1. ADVAIR HFA [Suspect]
     Route: 055
  2. FLONASE [Suspect]
     Route: 065
  3. ALBUTEROL [Concomitant]
  4. ALLEGRA [Concomitant]
  5. ERYTHROMYCIN [Concomitant]

REACTIONS (1)
  - DYSGEUSIA [None]
